FAERS Safety Report 9099120 (Version 2)
Quarter: 2013Q1

REPORT INFORMATION
  Report Type: Report from Study
  Country: ES (occurrence: ES)
  Receive Date: 20130214
  Receipt Date: 20130222
  Transmission Date: 20140127
  Serious: Yes (Hospitalization)
  Sender: FDA-Public Use
  Company Number: ES-MERCK-2012SP011766

PATIENT
  Age: 67 Year
  Sex: Female
  Weight: 70 kg

DRUGS (11)
  1. VICTRELIS [Suspect]
     Indication: HEPATITIS C
     Dosage: 800 MG, Q12H
     Route: 048
     Dates: start: 20111013
  2. PEGINTERFERON ALFA-2B [Suspect]
     Indication: HEPATITIS C
     Dosage: 100 ?G, UNKNOWN
     Route: 058
  3. RIBAVIRIN [Suspect]
     Indication: HEPATITIS C
     Dosage: 400 MG, Q12H
     Route: 048
  4. FOSFOMYCIN [Interacting]
     Indication: URINARY TRACT INFECTION
     Dosage: UNK UNK, UNKNOWN
     Route: 065
  5. SEGURIL [Concomitant]
     Indication: OEDEMA
     Dosage: UPDATE (12 MAR 2012): EVERY 48 HOURS
  6. ALDACTONE TABLETS [Concomitant]
     Indication: OEDEMA
     Dosage: UPDATE (12 MAR 2012): 100 (1 C/ DAY)
  7. FILGRASTIM [Concomitant]
     Indication: NEUTROPENIA
     Dosage: UPDATE (12 MAR 2012):/ 14 DAY
     Route: 058
  8. PRILOSEC [Concomitant]
     Indication: GASTRITIS PROPHYLAXIS
     Dosage: UPDATE (12 MAR 2012):
     Route: 048
  9. LACTITOL [Concomitant]
     Indication: LAXATIVE SUPPORTIVE CARE
     Dosage: UPDATE (12 MAR 2012):
  10. DARBEPOETIN ALFA [Concomitant]
     Indication: ANAEMIA
     Dosage: 100 MG, UNK, TUESDAY
     Route: 058
  11. OMEPRAZOLE [Suspect]
     Indication: PROPHYLAXIS AGAINST GASTROINTESTINAL ULCER
     Dosage: 20 MG, QD
     Route: 048

REACTIONS (2)
  - Hyponatraemia [Recovered/Resolved]
  - Drug interaction [Unknown]
